FAERS Safety Report 15719857 (Version 1)
Quarter: 2018Q4

REPORT INFORMATION
  Report Type: Spontaneous
  Country: DE (occurrence: DE)
  Receive Date: 20181213
  Receipt Date: 20181213
  Transmission Date: 20190205
  Serious: Yes (Other)
  Sender: FDA-Public Use
  Company Number: DE-PFIZER INC-2018509354

PATIENT
  Age: 38 Year
  Sex: Female
  Weight: 67 kg

DRUGS (13)
  1. PACLITAXEL. [Suspect]
     Active Substance: PACLITAXEL
     Indication: BREAST CANCER
     Dosage: 225 MG/M2, UNK
     Route: 042
     Dates: start: 201504, end: 201508
  2. HERCEPTIN [Suspect]
     Active Substance: TRASTUZUMAB
     Dosage: 2 MG/KG, WEEKLY
     Route: 042
     Dates: start: 20150609, end: 20150707
  3. IBUPROFEN. [Concomitant]
     Active Substance: IBUPROFEN
     Dosage: 400 MG, UNK
     Route: 048
  4. HERCEPTIN [Suspect]
     Active Substance: TRASTUZUMAB
     Dosage: 8 MG/KG, UNK
     Route: 042
     Dates: start: 20150929, end: 20150929
  5. PANTOZOL [Concomitant]
     Active Substance: PANTOPRAZOLE SODIUM
     Indication: PROPHYLAXIS
     Dosage: 20 MG, UNK
     Route: 048
     Dates: start: 20160713
  6. HERCEPTIN [Suspect]
     Active Substance: TRASTUZUMAB
     Indication: BREAST CANCER
     Dosage: LOADING DOSE (ONCE)
     Route: 042
     Dates: start: 20150602, end: 20150602
  7. HERCEPTIN [Suspect]
     Active Substance: TRASTUZUMAB
     Dosage: LOADING DOSE (ONCE)
     Route: 042
     Dates: start: 20160126, end: 20160126
  8. HERCEPTIN [Suspect]
     Active Substance: TRASTUZUMAB
     Dosage: 2 MG/KG, UNK
     Route: 042
     Dates: start: 20160202, end: 20160413
  9. COSENTYX [Concomitant]
     Active Substance: SECUKINUMAB
     Indication: PSORIASIS
     Dosage: 150 MG, UNK
     Route: 058
     Dates: start: 20160501, end: 201610
  10. EPIRUBICIN HCL [Suspect]
     Active Substance: EPIRUBICIN HYDROCHLORIDE
     Indication: BREAST CANCER
     Dosage: 150 MG/M2, UNK
     Route: 042
     Dates: start: 201504, end: 201508
  11. CYCLOPHOSPHAMID [Suspect]
     Active Substance: CYCLOPHOSPHAMIDE
     Indication: BREAST CANCER
     Dosage: 2000 MG/M2, UNK
     Route: 042
  12. HERCEPTIN [Suspect]
     Active Substance: TRASTUZUMAB
     Indication: BREAST CANCER
     Dosage: 600 MG, 7 CYCLES
     Route: 058
     Dates: start: 20160919, end: 20161007
  13. HERCEPTIN [Suspect]
     Active Substance: TRASTUZUMAB
     Dosage: 6 MG/KG, UNK
     Route: 042
     Dates: start: 20151020, end: 20151222

REACTIONS (1)
  - Oligohydramnios [Unknown]
